FAERS Safety Report 8481679-4 (Version None)
Quarter: 2012Q2

REPORT INFORMATION
  Report Type: 
  Country: None (occurrence: None)
  Receive Date: 20120402
  Receipt Date: 20110524
  Transmission Date: 20120825
  Serious: Yes (Hospitalization)
  Sender: FDA-Public Use
  Company Number: PHHY2011US45072

PATIENT
  Age: 73 Year
  Sex: Female

DRUGS (2)
  1. VICTOZA [Suspect]
     Dosage: UNK
  2. EXFORGE HCT [Suspect]

REACTIONS (1)
  - RENAL FAILURE [None]
